FAERS Safety Report 23096843 (Version 1)
Quarter: 2023Q4

REPORT INFORMATION
  Report Type: Spontaneous
  Country: PT (occurrence: PT)
  Receive Date: 20231023
  Receipt Date: 20231023
  Transmission Date: 20240110
  Serious: Yes (Other)
  Sender: FDA-Public Use
  Company Number: None

PATIENT
  Age: 45 Year
  Sex: Female
  Weight: 70 kg

DRUGS (2)
  1. ULTRAVIST [Suspect]
     Active Substance: IOPROMIDE
     Indication: Diagnostic procedure
     Dosage: NOT APPLICABLE
     Route: 042
     Dates: start: 20231004, end: 20231004
  2. TRIGLYCERIDES,UNSPECIFIED LENGTH [Concomitant]
     Active Substance: TRIGLYCERIDES,UNSPECIFIED LENGTH
     Dosage: UNK

REACTIONS (1)
  - Papule [Recovered/Resolved]

NARRATIVE: CASE EVENT DATE: 20231004
